FAERS Safety Report 20614195 (Version 2)
Quarter: 2022Q1

REPORT INFORMATION
  Report Type: Spontaneous
  Country: DK (occurrence: DK)
  Receive Date: 20220320
  Receipt Date: 20220324
  Transmission Date: 20220423
  Serious: Yes (Life-Threatening)
  Sender: FDA-Public Use
  Company Number: DK-NOVARTISPH-NVSC2022DK063260

PATIENT
  Sex: Female

DRUGS (1)
  1. PENICILLIN V [Suspect]
     Active Substance: PENICILLIN V
     Indication: Pneumonia
     Dosage: 1 MILL IE (30 TABLETS, QID)
     Route: 065
     Dates: start: 20220318, end: 20220318

REACTIONS (6)
  - Tinnitus [Unknown]
  - Dizziness [Unknown]
  - Nausea [Unknown]
  - Pigmentation disorder [Unknown]
  - Erythema [Unknown]
  - Hypersensitivity [Unknown]

NARRATIVE: CASE EVENT DATE: 20220318
